FAERS Safety Report 6622857-6 (Version None)
Quarter: 2010Q1

REPORT INFORMATION
  Report Type: 
  Country: None (occurrence: None)
  Receive Date: 20100310
  Receipt Date: 20091103
  Transmission Date: 20100710
  Serious: No
  Sender: FDA-Public Use
  Company Number: US-BIOGENIDEC-2009BI042117

PATIENT
  Sex: Female

DRUGS (2)
  1. AVONEX [Suspect]
     Indication: DRUG EXPOSURE DURING PREGNANCY
     Dates: start: 20020101, end: 20030101
  2. AVONEX [Suspect]
     Dates: start: 20030101

REACTIONS (1)
  - COMPLICATION OF DELIVERY [None]
